FAERS Safety Report 20153498 (Version 3)
Quarter: 2021Q4

REPORT INFORMATION
  Report Type: Other
  Country: US (occurrence: None)
  Receive Date: 20211206
  Receipt Date: 20211214
  Transmission Date: 20220303
  Serious: Yes (Death)
  Sender: FDA-Public Use
  Company Number: US-ROCHE-2973885

PATIENT
  Sex: Male
  Weight: 88 kg

DRUGS (12)
  1. ESBRIET [Suspect]
     Active Substance: PIRFENIDONE
     Indication: Pulmonary fibrosis
     Dosage: TAKE 3 CAPSULE(S) BY MOUTH 3 TIMES A DAY
     Route: 048
     Dates: start: 20210209
  2. ESBRIET [Suspect]
     Active Substance: PIRFENIDONE
     Indication: Idiopathic pulmonary fibrosis
     Dosage: TAKE 4 TABLETS BY MOUTH 3 TIMES DAILY WITH FOOD
     Route: 048
  3. POTASSIUM CHLORIDE [Concomitant]
     Active Substance: POTASSIUM CHLORIDE
  4. SPIRONOLACTONE [Concomitant]
     Active Substance: SPIRONOLACTONE
  5. WARFARIN [Concomitant]
     Active Substance: WARFARIN
  6. FUROSEMIDE [Concomitant]
     Active Substance: FUROSEMIDE
  7. AMLODIPINE [Concomitant]
     Active Substance: AMLODIPINE BESYLATE
  8. ATORVASTATIN [Concomitant]
     Active Substance: ATORVASTATIN
  9. ASPIRIN [Concomitant]
     Active Substance: ASPIRIN
  10. COENZYME Q10 [Concomitant]
     Active Substance: DIETARY SUPPLEMENT\UBIDECARENONE
  11. PANTOPRAZOLE [Concomitant]
     Active Substance: PANTOPRAZOLE
  12. ACETAMINOPHEN [Concomitant]
     Active Substance: ACETAMINOPHEN

REACTIONS (1)
  - Death [Fatal]
